FAERS Safety Report 7231314-8 (Version None)
Quarter: 2011Q1

REPORT INFORMATION
  Report Type: 
  Country: None (occurrence: None)
  Receive Date: 20110118
  Receipt Date: 20110112
  Transmission Date: 20110831
  Serious: Yes (Life-Threatening, Hospitalization)
  Sender: FDA-Public Use
  Company Number: PHHY2011CH02565

PATIENT
  Age: 70 Year
  Sex: Female

DRUGS (8)
  1. TORSEMIDE [Concomitant]
     Dosage: 10 MG, BID
     Dates: start: 20101108
  2. CORDARONE [Concomitant]
     Dosage: 150 MG, QD
     Dates: start: 20101107, end: 20101108
  3. METFORMIN [Suspect]
     Dosage: 1 G, BID
     Route: 048
     Dates: end: 20101107
  4. BISOPROLOL [Concomitant]
     Dosage: 10 MG, QD
     Dates: start: 20101108
  5. DIAMICRON [Concomitant]
     Dosage: 60 MG, BID
     Dates: start: 20101107
  6. LISINOPRIL [Concomitant]
     Dosage: 10 MG, QD
     Route: 048
     Dates: start: 20101108
  7. KONAKION [Concomitant]
     Dosage: 10 MG, QD
     Route: 042
     Dates: start: 20101107, end: 20101108
  8. MULTAQ [Concomitant]
     Dosage: 400 MG, BID
     Dates: start: 20101107, end: 20101108

REACTIONS (16)
  - SKULL FRACTURED BASE [None]
  - PNEUMONIA [None]
  - BLOOD CREATININE INCREASED [None]
  - ANURIA [None]
  - SYNCOPE [None]
  - RESPIRATORY RATE INCREASED [None]
  - INTERNATIONAL NORMALISED RATIO INCREASED [None]
  - CARDIOGENIC SHOCK [None]
  - SUBARACHNOID HAEMORRHAGE [None]
  - CEREBRAL HAEMORRHAGE [None]
  - FALL [None]
  - LACTIC ACIDOSIS [None]
  - OLIGURIA [None]
  - LEFT VENTRICULAR DYSFUNCTION [None]
  - HYPOTENSION [None]
  - DRUG LEVEL INCREASED [None]
